FAERS Safety Report 18066774 (Version 3)
Quarter: 2020Q3

REPORT INFORMATION
  Report Type: Spontaneous
  Country: US (occurrence: US)
  Receive Date: 20200724
  Receipt Date: 20200730
  Transmission Date: 20201103
  Serious: No
  Sender: FDA-Public Use
  Company Number: US-PFIZER INC-2020280816

PATIENT
  Sex: Female

DRUGS (3)
  1. XANAX [Interacting]
     Active Substance: ALPRAZOLAM
     Dosage: UNK
  2. ADDERALL [Interacting]
     Active Substance: AMPHETAMINE ASPARTATE\AMPHETAMINE SULFATE\DEXTROAMPHETAMINE SACCHARATE\DEXTROAMPHETAMINE SULFATE
     Dosage: UNK (DOESN^T TAKE IT DAILY)
     Dates: start: 202003
  3. PRISTIQ EXTENDED?RELEASE [Suspect]
     Active Substance: DESVENLAFAXINE SUCCINATE
     Dosage: 50 MG, DAILY

REACTIONS (4)
  - Anxiety [Unknown]
  - Contraindicated product administered [Unknown]
  - Panic attack [Unknown]
  - Drug interaction [Unknown]

NARRATIVE: CASE EVENT DATE: 202003
